FAERS Safety Report 19776942 (Version 4)
Quarter: 2021Q4

REPORT INFORMATION
  Report Type: Spontaneous
  Country: US (occurrence: US)
  Receive Date: 20210902
  Receipt Date: 20211214
  Transmission Date: 20220303
  Serious: No
  Sender: FDA-Public Use
  Company Number: US-SA-SAC20210831000226

PATIENT
  Age: 64 Year
  Sex: Male

DRUGS (3)
  1. AUBAGIO [Suspect]
     Active Substance: TERIFLUNOMIDE
     Indication: Multiple sclerosis
     Dosage: 14 MG, QD
     Route: 048
  2. AUBAGIO [Suspect]
     Active Substance: TERIFLUNOMIDE
     Dosage: 14 MG, QD
     Route: 048
     Dates: start: 20210720
  3. AUBAGIO [Suspect]
     Active Substance: TERIFLUNOMIDE
     Dosage: 14 MG, QD
     Route: 048
     Dates: start: 20210727

REACTIONS (8)
  - Dizziness [Unknown]
  - Vertigo [Unknown]
  - Confusional state [Unknown]
  - Balance disorder [Unknown]
  - Cerebral disorder [Unknown]
  - Headache [Unknown]
  - Surgery [Unknown]
  - Pain [Unknown]

NARRATIVE: CASE EVENT DATE: 20210101
